FAERS Safety Report 11470908 (Version 2)
Quarter: 2015Q3

REPORT INFORMATION
  Report Type: Spontaneous
  Country: US (occurrence: US)
  Receive Date: 20150903
  Receipt Date: 20150903
  Transmission Date: 20151125
  Serious: No
  Sender: FDA-Public Use
  Company Number: US-ELI_LILLY_AND_COMPANY-US201111000918

PATIENT
  Age: 59 Year
  Sex: Female
  Weight: 63.49 kg

DRUGS (6)
  1. TYLENOL                                 /SCH/ [Concomitant]
     Dosage: UNK, PRN
  2. IBUPROFEN. [Concomitant]
     Active Substance: IBUPROFEN
  3. NSAID^S [Concomitant]
     Active Substance: UNSPECIFIED INGREDIENT
  4. CYMBALTA [Suspect]
     Active Substance: DULOXETINE HYDROCHLORIDE
     Dosage: 120 MG, EACH EVENING
     Dates: start: 201001, end: 201107
  5. CYMBALTA [Suspect]
     Active Substance: DULOXETINE HYDROCHLORIDE
     Indication: DEPRESSION
     Dosage: 60 MG, EACH EVENING
     Dates: start: 200912, end: 201001
  6. CYMBALTA [Suspect]
     Active Substance: DULOXETINE HYDROCHLORIDE
     Dosage: 60 MG, EACH EVENING
     Dates: start: 20111026

REACTIONS (4)
  - Skin odour abnormal [Not Recovered/Not Resolved]
  - Drug withdrawal syndrome [Unknown]
  - Weight decreased [Unknown]
  - Somnambulism [Unknown]

NARRATIVE: CASE EVENT DATE: 201107
